FAERS Safety Report 21085406 (Version 2)
Quarter: 2022Q3

REPORT INFORMATION
  Report Type: Spontaneous
  Country: TW (occurrence: TW)
  Receive Date: 20220714
  Receipt Date: 20220802
  Transmission Date: 20221027
  Serious: Yes (Hospitalization)
  Sender: FDA-Public Use
  Company Number: TW-ABBVIE-22K-153-4467560-00

PATIENT
  Age: 65 Year
  Sex: Female

DRUGS (3)
  1. GLECAPREVIR\PIBRENTASVIR [Suspect]
     Active Substance: GLECAPREVIR\PIBRENTASVIR
     Indication: Hepatitis C
     Route: 048
     Dates: start: 20220504, end: 20220601
  2. AGGLUTEX [Concomitant]
     Indication: Anticoagulant therapy
  3. CONPAC [Concomitant]
     Indication: Anticoagulant therapy

REACTIONS (1)
  - Gastrointestinal haemorrhage [Unknown]

NARRATIVE: CASE EVENT DATE: 20220101
